FAERS Safety Report 6268261-4 (Version None)
Quarter: 2009Q3

REPORT INFORMATION
  Report Type: 
  Country: None (occurrence: None)
  Receive Date: 20090714
  Receipt Date: 20090714
  Transmission Date: 20100115
  Serious: Yes (Hospitalization)
  Sender: FDA-Public Use
  Company Number: None

PATIENT
  Age: 52 Year
  Sex: Female
  Weight: 249.4784 kg

DRUGS (10)
  1. TOPIRAMATE [Suspect]
     Indication: MIGRAINE
     Dosage: 100MG TWICE A DAY PO
     Route: 048
     Dates: start: 20090401, end: 20090622
  2. TOPIRAMATE [Suspect]
     Indication: MIGRAINE
     Dosage: 100MG TWICE A DAY PO
     Route: 048
     Dates: start: 20090622, end: 20090713
  3. ATENOLOL [Concomitant]
  4. PROPOXYPHENE HCL CAP [Concomitant]
  5. POTASSIUM CHLORIDE [Concomitant]
  6. PAXIL [Concomitant]
  7. FUROSEMIDE [Concomitant]
  8. METFORMIN HCL [Concomitant]
  9. LORATADINE [Concomitant]
  10. LEVOTHYROXINE SODIUM [Concomitant]

REACTIONS (12)
  - AGITATION [None]
  - CONFUSIONAL STATE [None]
  - DISTURBANCE IN ATTENTION [None]
  - FEELING JITTERY [None]
  - IRRITABILITY [None]
  - MIGRAINE [None]
  - MOOD SWINGS [None]
  - NERVOUSNESS [None]
  - PHOTOPHOBIA [None]
  - PRODUCT SUBSTITUTION ISSUE [None]
  - TREMOR [None]
  - VIOLENCE-RELATED SYMPTOM [None]
